APPROVED DRUG PRODUCT: GLYCOPYRROLATE
Active Ingredient: GLYCOPYRROLATE
Strength: 2MG
Dosage Form/Route: TABLET;ORAL
Application: A207201 | Product #002 | TE Code: AA
Applicant: APPCO PHARMA LLC
Approved: Jan 3, 2017 | RLD: No | RS: No | Type: RX